FAERS Safety Report 18695251 (Version 1)
Quarter: 2021Q1

REPORT INFORMATION
  Report Type: Spontaneous
  Country: FR (occurrence: FR)
  Receive Date: 20210104
  Receipt Date: 20210104
  Transmission Date: 20210419
  Serious: Yes (Other)
  Sender: FDA-Public Use
  Company Number: FR-PFIZER INC-2020516927

PATIENT
  Age: 45 Year
  Sex: Female

DRUGS (3)
  1. CODOLIPRANE [Suspect]
     Active Substance: ACETAMINOPHEN\CODEINE PHOSPHATE
     Dosage: UNK, DAILY (UP TO 30 TABLETS PER DAY)
     Route: 048
     Dates: end: 2018
  2. XANAX [Suspect]
     Active Substance: ALPRAZOLAM
     Dosage: UNK (MORE THAN PRESCRIBED,  WITHOUT OTHER DETAILS)
     Route: 048
  3. IXPRIM [Suspect]
     Active Substance: ACETAMINOPHEN\TRAMADOL HYDROCHLORIDE
     Dosage: UNK, DAILY (UP TO 15 TABLETS DAILY)
     Route: 048
     Dates: start: 2016

REACTIONS (2)
  - Drug dependence [Not Recovered/Not Resolved]
  - Drug abuse [Unknown]

NARRATIVE: CASE EVENT DATE: 202003
